FAERS Safety Report 17711337 (Version 1)
Quarter: 2020Q2

REPORT INFORMATION
  Report Type: Spontaneous
  Country: US (occurrence: US)
  Receive Date: 20200424
  Receipt Date: 20200424
  Transmission Date: 20200714
  Serious: Yes (Other)
  Sender: FDA-Public Use
  Company Number: None

PATIENT
  Age: 53 Year
  Sex: Female
  Weight: 88.45 kg

DRUGS (4)
  1. DR. REDDY GENERIC (SUBOXONE) 8MG-2MG FILM [Suspect]
     Active Substance: BUPRENORPHINE HYDROCHLORIDE\NALOXONE HYDROCHLORIDE
     Indication: DRUG DEPENDENCE
  2. ALVOGEN GENERIC (SUBOXONE) 8-2MG FILM [Suspect]
     Active Substance: BUPRENORPHINE HYDROCHLORIDE\NALOXONE HYDROCHLORIDE
     Indication: DRUG USE DISORDER
     Dosage: ?          OTHER DOSE:8-2 MG;?
     Route: 060
     Dates: start: 201708
  3. SANDOZ GENERIC (SUBOXONE) 8MG-2MG FILM [Suspect]
     Active Substance: BUPRENORPHINE HYDROCHLORIDE\NALOXONE HYDROCHLORIDE
  4. ALVOGEN GENERIC (SUBOXONE) 8-2MG FILM [Suspect]
     Active Substance: BUPRENORPHINE HYDROCHLORIDE\NALOXONE HYDROCHLORIDE
     Indication: DRUG WITHDRAWAL MAINTENANCE THERAPY
     Dosage: ?          OTHER DOSE:8-2 MG;?
     Route: 060
     Dates: start: 201708

REACTIONS (3)
  - Product substitution issue [None]
  - Drug intolerance [None]
  - Headache [None]

NARRATIVE: CASE EVENT DATE: 202002
